FAERS Safety Report 4731540-3 (Version None)
Quarter: 2005Q3

REPORT INFORMATION
  Report Type: 
  Country: None (occurrence: None)
  Receive Date: 20050719
  Receipt Date: 20050706
  Transmission Date: 20060218
  Serious: Yes (Other)
  Sender: FDA-Public Use
  Company Number: 2005099144

PATIENT
  Age: 52 Year
  Sex: Female
  Weight: 68.0396 kg

DRUGS (15)
  1. VISTARIL (IM) (HYDROXYZINE HYDROCHLORIDE) [Suspect]
     Indication: CONVULSION
     Dosage: INTRAMUSCULAR
     Route: 030
     Dates: start: 19810101
  2. DILANTIN [Suspect]
     Indication: CONVULSION
     Dates: start: 19820101
  3. ZOLOFT [Suspect]
     Indication: PAIN
     Dosage: ORAL
     Route: 048
     Dates: start: 19980801
  4. ALL OTHER THERAPEUTIC PRODUCTS (ALL OTHER THERAPEUTIC PRODUCTS) [Suspect]
     Indication: PAIN
  5. VICODIN [Suspect]
     Indication: PAIN
  6. MS CONTIN [Suspect]
     Indication: PAIN
  7. DIPHENHYDRAMINE HCL [Concomitant]
  8. AZMACORT [Concomitant]
  9. ALBUTEROL [Concomitant]
  10. FAMOTIDINE [Concomitant]
  11. DYAZIDE [Concomitant]
  12. CHLORDIAZEPOXIDE [Concomitant]
  13. EPIPEN (EPINEPHRINE) [Concomitant]
  14. HYDROXYZINE [Concomitant]
  15. VITAMINS (VITAMINS) [Concomitant]

REACTIONS (17)
  - BONE GRAFT [None]
  - COMA [None]
  - CONVULSION [None]
  - DRUG INEFFECTIVE [None]
  - DRUG LEVEL FLUCTUATING [None]
  - DRUG PRESCRIBING ERROR [None]
  - HYPOAESTHESIA [None]
  - JOINT DISLOCATION [None]
  - LOWER RESPIRATORY TRACT INFECTION [None]
  - MEDICAL DEVICE COMPLICATION [None]
  - MENINGITIS [None]
  - MUSCLE SPASMS [None]
  - PAIN [None]
  - PARALYSIS [None]
  - ROAD TRAFFIC ACCIDENT [None]
  - STOMACH DISCOMFORT [None]
  - SUICIDAL IDEATION [None]
